FAERS Safety Report 9889372 (Version 2)
Quarter: 2014Q2

REPORT INFORMATION
  Report Type: Report from Study
  Country: US (occurrence: US)
  Receive Date: 20140211
  Receipt Date: 20140407
  Transmission Date: 20141212
  Serious: Yes (Other)
  Sender: FDA-Public Use
  Company Number: US-ABBVIE-14P-163-1198523-00

PATIENT
  Sex: Female

DRUGS (3)
  1. HUMIRA [Suspect]
     Indication: PSORIATIC ARTHROPATHY
     Dates: end: 201202
  2. HUMIRA [Suspect]
     Dates: start: 201212
  3. PRENATAL [Concomitant]
     Indication: PRODUCT USED FOR UNKNOWN INDICATION

REACTIONS (8)
  - Prolonged labour [Unknown]
  - Hypertension [Not Recovered/Not Resolved]
  - Vitamin D decreased [Unknown]
  - Weight decreased [Unknown]
  - Arthritis [Unknown]
  - Sensitivity of teeth [Unknown]
  - Tooth fracture [Unknown]
  - Dizziness [Unknown]
